FAERS Safety Report 18575668 (Version 5)
Quarter: 2021Q2

REPORT INFORMATION
  Report Type: Spontaneous
  Country: US (occurrence: US)
  Receive Date: 20201203
  Receipt Date: 20210602
  Transmission Date: 20210717
  Serious: Yes (Other)
  Sender: FDA-Public Use
  Company Number: US-PFIZER INC-2020475607

PATIENT
  Age: 58 Year
  Sex: Female

DRUGS (1)
  1. XELJANZ XR [Suspect]
     Active Substance: TOFACITINIB CITRATE
     Indication: RHEUMATOID ARTHRITIS
     Dosage: 11 MG, 1X/DAY
     Route: 048
     Dates: start: 2018

REACTIONS (8)
  - Herpes zoster [Unknown]
  - Arthralgia [Recovering/Resolving]
  - Discouragement [Unknown]
  - Product dose omission in error [Unknown]
  - Bursitis [Recovering/Resolving]
  - Contusion [Unknown]
  - Memory impairment [Unknown]
  - Fall [Unknown]
